FAERS Safety Report 4636747-1 (Version None)
Quarter: 2005Q2

REPORT INFORMATION
  Report Type: 
  Country: None (occurrence: None)
  Receive Date: 20050414
  Receipt Date: 20050401
  Transmission Date: 20051028
  Serious: Yes (Hospitalization)
  Sender: FDA-Public Use
  Company Number: 2005054889

PATIENT
  Age: 60 Year
  Sex: Male

DRUGS (4)
  1. HALCION [Suspect]
     Indication: INSOMNIA
     Dosage: 0.25 MG, ORAL
     Route: 048
  2. CIMETIDINE [Suspect]
     Indication: RECTAL CANCER
     Dosage: 400 MG, ORAL
     Route: 048
  3. PAROXETINE HCL [Suspect]
     Indication: ANXIETY
     Dosage: 10 MG, ORAL
     Route: 048
     Dates: start: 20020212, end: 20050214
  4. ETIZOLAM (ETIZOLAM) [Suspect]
     Indication: ANXIETY DISORDER
     Dosage: 3 MG, ORAL
     Route: 048
     Dates: end: 20050212

REACTIONS (14)
  - APHASIA [None]
  - BLOOD BILIRUBIN INCREASED [None]
  - BLOOD UREA INCREASED [None]
  - CHILLS [None]
  - DECREASED APPETITE [None]
  - FEELING ABNORMAL [None]
  - HEADACHE [None]
  - HYPERHIDROSIS [None]
  - HYPOAESTHESIA [None]
  - HYPOVENTILATION [None]
  - IMPAIRED DRIVING ABILITY [None]
  - MUSCULOSKELETAL STIFFNESS [None]
  - NEUROLEPTIC MALIGNANT SYNDROME [None]
  - TREMOR [None]
